FAERS Safety Report 6692932-9 (Version None)
Quarter: 2010Q2

REPORT INFORMATION
  Report Type: 
  Country: None (occurrence: None)
  Receive Date: 20100422
  Receipt Date: 20100409
  Transmission Date: 20101027
  Serious: Yes (Hospitalization, Other)
  Sender: FDA-Public Use
  Company Number: BR-MEDIMMUNE-MEDI-0011095

PATIENT
  Sex: Male
  Weight: 8.4 kg

DRUGS (1)
  1. SYNAGIS [Suspect]
     Route: 030
     Dates: start: 20090908

REACTIONS (4)
  - DYSPHONIA [None]
  - INFLUENZA [None]
  - LARYNGITIS [None]
  - PNEUMONIA [None]
